FAERS Safety Report 16101667 (Version 1)
Quarter: 2019Q1

REPORT INFORMATION
  Report Type: Report from Study
  Country: CA (occurrence: CA)
  Receive Date: 20190321
  Receipt Date: 20190321
  Transmission Date: 20190418
  Serious: Yes (Hospitalization, Other)
  Sender: FDA-Public Use
  Company Number: CA-TEVA-2019-CA-1014676

PATIENT
  Age: 51 Year
  Sex: Male

DRUGS (12)
  1. MORPHINE SULFATE. [Suspect]
     Active Substance: MORPHINE SULFATE
     Indication: PRODUCT USED FOR UNKNOWN INDICATION
     Route: 065
  2. COSENTYX [Suspect]
     Active Substance: SECUKINUMAB
     Route: 058
  3. REMICADE [Concomitant]
     Active Substance: INFLIXIMAB
  4. HUMIRA [Concomitant]
     Active Substance: ADALIMUMAB
  5. NAPROXEN. [Concomitant]
     Active Substance: NAPROXEN
  6. SIMPONI [Concomitant]
     Active Substance: GOLIMUMAB
  7. METHOTREXATE. [Suspect]
     Active Substance: METHOTREXATE
     Indication: PRODUCT USED FOR UNKNOWN INDICATION
     Route: 065
  8. TYLENOL [Concomitant]
     Active Substance: ACETAMINOPHEN
  9. ENBREL [Concomitant]
     Active Substance: ETANERCEPT
  10. COSENTYX [Suspect]
     Active Substance: SECUKINUMAB
     Indication: ANKYLOSING SPONDYLITIS
     Route: 058
  11. NAPROXEN SODIUM/PSEUDOEPHEDRINE HYDROCHLORIDE [Concomitant]
  12. PREDNISONE. [Concomitant]
     Active Substance: PREDNISONE

REACTIONS (3)
  - Pneumonia [Unknown]
  - Drug ineffective [Unknown]
  - Inappropriate schedule of product administration [Unknown]
